FAERS Safety Report 16963219 (Version 1)
Quarter: 2019Q4

REPORT INFORMATION
  Report Type: Spontaneous
  Country: US (occurrence: US)
  Receive Date: 20191025
  Receipt Date: 20191025
  Transmission Date: 20200122
  Serious: Yes (Hospitalization)
  Sender: FDA-Public Use
  Company Number: US-ANIPHARMA-2019-US-020165

PATIENT
  Sex: Male

DRUGS (4)
  1. PROPRANOLOL [Concomitant]
     Active Substance: PROPRANOLOL HYDROCHLORIDE
     Dosage: UNKNOWN
     Route: 065
     Dates: end: 20190830
  2. PAROXETINE. [Suspect]
     Active Substance: PAROXETINE
     Dosage: UNKNOWN
     Route: 065
     Dates: end: 20190830
  3. LITHIUM CARBONATE (NON-SPECIFIC) [Suspect]
     Active Substance: LITHIUM
     Indication: PRODUCT USED FOR UNKNOWN INDICATION
     Dosage: UNKNOWN
     Route: 065
     Dates: end: 20190830
  4. ABILIFY [Suspect]
     Active Substance: ARIPIPRAZOLE
     Dosage: 7.5 MG, QD, ORAL
     Route: 048
     Dates: start: 2017

REACTIONS (3)
  - Tremor [Unknown]
  - Drug interaction [Unknown]
  - Psychiatric decompensation [Not Recovered/Not Resolved]
